FAERS Safety Report 22372857 (Version 1)
Quarter: 2023Q2

REPORT INFORMATION
  Report Type: Spontaneous
  Country: FR (occurrence: FR)
  Receive Date: 20230526
  Receipt Date: 20230526
  Transmission Date: 20230722
  Serious: Yes (Other)
  Sender: FDA-Public Use
  Company Number: FR-GLAXOSMITHKLINE-FR2021EME133898

PATIENT
  Age: 55 Year
  Sex: Male
  Weight: 120 kg

DRUGS (6)
  1. AZITHROMYCIN [Suspect]
     Active Substance: AZITHROMYCIN
     Indication: Asthma
     Dosage: 150 MG, CYCLIC, 150 MG (3 IN 1 WEEK)
     Dates: start: 20180711
  2. NUCALA [Suspect]
     Active Substance: MEPOLIZUMAB
     Indication: Asthma
     Dosage: 100 MG, CYCLIC, EVERY 4 WEEKS
     Route: 058
     Dates: start: 201810, end: 20210215
  3. PANTOPRAZOLE [Concomitant]
     Active Substance: PANTOPRAZOLE
     Dosage: 20 MG, 1X/DAY
  4. NASONEX [Concomitant]
     Active Substance: MOMETASONE FUROATE
     Dosage: UNK
     Route: 045
     Dates: start: 20180711
  5. FASENRA [Concomitant]
     Active Substance: BENRALIZUMAB
     Indication: Asthma
     Dosage: 30 MG, 1X/DAY, EVERY 4 WEEK FOR 3 MONTHS
     Route: 058
     Dates: start: 202103
  6. FASENRA [Concomitant]
     Active Substance: BENRALIZUMAB
     Dosage: 30 MG, 1X/DAY,  EVERY 8 WEEK
     Route: 058
     Dates: start: 20210611

REACTIONS (8)
  - Polymyalgia rheumatica [Recovering/Resolving]
  - Weight increased [Recovering/Resolving]
  - Gastrooesophageal reflux disease [Recovering/Resolving]
  - Pain [Unknown]
  - Dyspnoea [Recovering/Resolving]
  - Arthralgia [Recovering/Resolving]
  - Dyspepsia [Recovering/Resolving]
  - Off label use [Unknown]

NARRATIVE: CASE EVENT DATE: 20180711
